FAERS Safety Report 5246920-X (Version None)
Quarter: 2007Q1

REPORT INFORMATION
  Report Type: 
  Country: None (occurrence: None)
  Receive Date: 20070226
  Receipt Date: 20070220
  Transmission Date: 20070707
  Serious: Yes (Death)
  Sender: FDA-Public Use
  Company Number: MW-BOEHRINGER INGELHEIM PHARMACEUTICALS, INC.-2007-DE-01036GD

PATIENT

DRUGS (1)
  1. TRIOMUNE [Suspect]
     Indication: HIV INFECTION
     Dosage: STARTING REGIMEN WITH STAVUDINE 40 MG/LAMIVUDINE 150 MG/NEVIRAPINE 200 MG ONCE DAILY FOR 14 D, WITH

REACTIONS (6)
  - DEATH [None]
  - HEPATITIS [None]
  - LACTIC ACIDOSIS [None]
  - NEUROPATHY [None]
  - PANCREATITIS [None]
  - RASH [None]
